FAERS Safety Report 21929868 (Version 4)
Quarter: 2023Q2

REPORT INFORMATION
  Report Type: Spontaneous
  Country: TR (occurrence: TR)
  Receive Date: 20230131
  Receipt Date: 20230413
  Transmission Date: 20230721
  Serious: Yes (Other)
  Sender: FDA-Public Use
  Company Number: TR-ABBOTT-2023A-1358935

PATIENT
  Age: 65 Year
  Sex: Female

DRUGS (7)
  1. PANCRELIPASE [Suspect]
     Active Substance: PANCRELIPASE
     Indication: Hepatic steatosis
     Dosage: THE PATIENT HAS BEEN USING KREON FOR 2 MONTHS, MORNING AND EVENING
     Route: 048
     Dates: start: 202211, end: 2023
  2. PANCRELIPASE [Suspect]
     Active Substance: PANCRELIPASE
     Indication: Hepatic steatosis
     Route: 048
     Dates: start: 2023
  3. SIMFLAT [SIMETICONE] [Concomitant]
     Indication: Dyspepsia
     Route: 048
     Dates: start: 202211, end: 2023
  4. SIMFLAT [SIMETICONE] [Concomitant]
     Indication: Dyspepsia
     Route: 048
     Dates: start: 202211
  5. ALPHA LIPOIC ACID [Concomitant]
     Active Substance: .ALPHA.-LIPOIC ACID
     Indication: Prophylaxis
     Route: 048
  6. VITAMIN C [Concomitant]
     Active Substance: ASCORBIC ACID
     Indication: Prophylaxis
     Route: 048
  7. METHYLCOBALAMIN [Concomitant]
     Active Substance: METHYLCOBALAMIN
     Indication: Prophylaxis
     Route: 048

REACTIONS (7)
  - Blood albumin increased [Recovered/Resolved]
  - Albumin urine present [Recovered/Resolved]
  - Renal pain [Recovered/Resolved]
  - Protein urine present [Not Recovered/Not Resolved]
  - Blood pressure increased [Recovered/Resolved]
  - Nausea [Recovered/Resolved]
  - Blood calcium increased [Not Recovered/Not Resolved]

NARRATIVE: CASE EVENT DATE: 20230101
